FAERS Safety Report 8967757 (Version 1)
Quarter: 2012Q4

REPORT INFORMATION
  Report Type: Spontaneous
  Country: US (occurrence: None)
  Receive Date: 20121213
  Receipt Date: 20121213
  Transmission Date: 20130627
  Serious: Yes (Other)
  Sender: FDA-Public Use
  Company Number: None

PATIENT
  Age: 56 Year
  Sex: Female
  Weight: 63.5 kg

DRUGS (1)
  1. LEVOFLOXACIN [Suspect]
     Indication: SINUSITIS
     Dosage: 1   daily   po
     Route: 048
     Dates: start: 20121202, end: 20121203

REACTIONS (4)
  - Pyrexia [None]
  - Chills [None]
  - Malaise [None]
  - Pain [None]
